FAERS Safety Report 21545384 (Version 1)
Quarter: 2022Q4

REPORT INFORMATION
  Report Type: Spontaneous
  Country: US (occurrence: US)
  Receive Date: 20221103
  Receipt Date: 20221103
  Transmission Date: 20230113
  Serious: No
  Sender: FDA-Public Use
  Company Number: US-ABBVIE-20K-163-3660651-00

PATIENT
  Sex: Female

DRUGS (6)
  1. RINVOQ [Suspect]
     Active Substance: UPADACITINIB
     Indication: Rheumatoid arthritis
     Route: 048
  2. METHOTREXATE [Concomitant]
     Active Substance: METHOTREXATE
     Indication: Product used for unknown indication
  3. Pfizer BioNTech covod-19 vaccine [Concomitant]
     Indication: COVID-19 immunisation
     Dosage: PFIZER BIONTECH 1ST DOSE
     Dates: start: 20220301, end: 20220301
  4. Pfizer BioNTech covod-19 vaccine [Concomitant]
     Indication: COVID-19 immunisation
     Dosage: PFIZER/BIONTECH 2ND DOSE
     Dates: start: 20220401, end: 20220401
  5. Pfizer BioNTech covod-19 vaccine [Concomitant]
     Indication: COVID-19 immunisation
     Dosage: PFIZER/BIONTECH 3RD DOSE
     Dates: start: 20220901, end: 20220901
  6. Pfizer BioNTech covod-19 vaccine [Concomitant]
     Indication: COVID-19 immunisation
     Dosage: PFIZER/BIONTECH COVID BOOSTER VACCINE
     Dates: start: 20220420, end: 20220420

REACTIONS (2)
  - Hypertension [Not Recovered/Not Resolved]
  - Blood cholesterol increased [Not Recovered/Not Resolved]

NARRATIVE: CASE EVENT DATE: 20200101
